FAERS Safety Report 9129493 (Version 1)
Quarter: 2013Q1

REPORT INFORMATION
  Report Type: Spontaneous
  Country: US (occurrence: US)
  Receive Date: 20130125
  Receipt Date: 20130125
  Transmission Date: 20140127
  Serious: No
  Sender: FDA-Public Use
  Company Number: US-PFIZER INC-2013024973

PATIENT
  Sex: Female

DRUGS (2)
  1. GLUCOTROL XL [Suspect]
     Dosage: 2 X 10MG X 1 TABS, UNK
  2. GLUCOTROL [Suspect]
     Dosage: 2 X 10MG X 1 TABS, UNK

REACTIONS (1)
  - Blood glucose fluctuation [Unknown]
